FAERS Safety Report 9547288 (Version 4)
Quarter: 2014Q1

REPORT INFORMATION
  Report Type: Report from Study
  Country: ES (occurrence: ES)
  Receive Date: 20130924
  Receipt Date: 20140122
  Transmission Date: 20141002
  Serious: Yes (Death, Life-Threatening, Hospitalization)
  Sender: FDA-Public Use
  Company Number: ES-CELGENEUS-144-C4047-13091770

PATIENT
  Age: 73 Year
  Sex: Female
  Weight: 64.5 kg

DRUGS (21)
  1. CC-4047 [Suspect]
     Indication: PLASMA CELL MYELOMA
     Dosage: 4 MILLIGRAM
     Route: 048
     Dates: start: 20130730, end: 20130826
  2. CC-4047 [Suspect]
     Dosage: 4 MILLIGRAM
     Route: 048
     Dates: start: 20130827, end: 20130910
  3. CC-4047 [Suspect]
     Route: 048
     Dates: end: 20130925
  4. DEXAMETHASONE [Suspect]
     Indication: PLASMA CELL MYELOMA
     Dosage: 40 MILLIGRAM
     Route: 065
     Dates: start: 20130730, end: 20130826
  5. DEXAMETHASONE [Suspect]
     Dosage: 40 MILLIGRAM
     Route: 065
     Dates: start: 20130827, end: 20130910
  6. DEXAMETHASONE [Suspect]
     Route: 065
     Dates: end: 20130925
  7. DEXAMETHASONE [Suspect]
     Dates: start: 19980918, end: 19981228
  8. DEXAMETHASONE [Suspect]
     Route: 065
     Dates: start: 20071112, end: 20080519
  9. DEXAMETHASONE [Suspect]
     Dates: start: 20080925, end: 20081201
  10. DEXAMETHASONE [Suspect]
     Route: 065
     Dates: start: 20090216, end: 20090309
  11. DEXAMETHASONE [Suspect]
     Route: 065
     Dates: start: 20090817, end: 20091221
  12. DEXAMETHASONE [Suspect]
     Route: 065
     Dates: start: 20100115, end: 20100909
  13. DEXAMETHASONE [Suspect]
     Route: 065
     Dates: start: 20110811, end: 20120809
  14. DEXAMETHASONE [Suspect]
     Dosage: 20 MILLIGRAM
     Route: 065
     Dates: start: 20120905, end: 20130220
  15. DEXAMETHASONE [Suspect]
     Route: 065
     Dates: start: 20130404, end: 20130509
  16. OMEPRAZOLE [Concomitant]
     Indication: PROPHYLAXIS
     Dosage: 20 MILLIGRAM
     Route: 048
  17. LYRICA [Concomitant]
     Indication: PRODUCT USED FOR UNKNOWN INDICATION
     Dosage: 150 MILLIGRAM
     Route: 048
  18. FENTANIL [Concomitant]
     Indication: PAIN
     Dosage: 25 MILLIGRAM
     Route: 065
  19. CALCIUM [Concomitant]
     Indication: PROPHYLAXIS
     Route: 065
  20. CLEXANE [Concomitant]
     Indication: PROPHYLAXIS
     Route: 065
  21. DUPHALAC [Concomitant]
     Indication: CONSTIPATION
     Route: 048
     Dates: start: 20130913, end: 20130924

REACTIONS (2)
  - Bronchitis [Recovered/Resolved]
  - Plasma cell myeloma [Fatal]
